FAERS Safety Report 9284701 (Version 3)
Quarter: 2014Q2

REPORT INFORMATION
  Report Type: Report from Study
  Country: CA (occurrence: CA)
  Receive Date: 20130513
  Receipt Date: 20140416
  Transmission Date: 20141212
  Serious: Yes (Other)
  Sender: FDA-Public Use
  Company Number: CA-ROCHE-1211793

PATIENT
  Age: 16 Year
  Sex: Female
  Weight: 52.2 kg

DRUGS (14)
  1. ACTEMRA [Suspect]
     Indication: JUVENILE IDIOPATHIC ARTHRITIS
     Route: 042
     Dates: start: 20121130
  2. ACTEMRA [Suspect]
     Route: 042
     Dates: end: 20131230
  3. METHOTREXATE [Concomitant]
  4. SINGULAIR [Concomitant]
  5. RISPERDAL [Concomitant]
  6. ADVAIR [Concomitant]
  7. STRATTERA [Concomitant]
  8. PREDNISONE [Concomitant]
  9. PREVACID [Concomitant]
  10. FOLIC ACID [Concomitant]
  11. EFFEXOR [Concomitant]
  12. ELAVIL (CANADA) [Concomitant]
  13. VOLTAREN [Concomitant]
  14. REACTINE (CANADA) [Concomitant]

REACTIONS (6)
  - Dyspnoea [Recovered/Resolved]
  - Tachycardia [Recovered/Resolved]
  - Neurogenic shock [Recovered/Resolved]
  - Epistaxis [Not Recovered/Not Resolved]
  - Paraesthesia oral [Unknown]
  - Sinusitis [Unknown]
